FAERS Safety Report 8587967-5 (Version None)
Quarter: 2012Q3

REPORT INFORMATION
  Report Type: 
  Country: None (occurrence: None)
  Receive Date: 20120813
  Receipt Date: 20120806
  Transmission Date: 20120928
  Serious: No
  Sender: FDA-Public Use
  Company Number: US-BIOGENIDEC-2012BI029676

PATIENT
  Sex: Female

DRUGS (1)
  1. AVONEX [Suspect]
     Indication: MULTIPLE SCLEROSIS
     Route: 030
     Dates: start: 20120319

REACTIONS (9)
  - POLLAKIURIA [None]
  - EYE PRURITUS [None]
  - MEMORY IMPAIRMENT [None]
  - DEHYDRATION [None]
  - GINGIVAL ATROPHY [None]
  - MUSCLE SPASMS [None]
  - DYSPHAGIA [None]
  - DEPRESSION [None]
  - INFLUENZA LIKE ILLNESS [None]
